FAERS Safety Report 13012251 (Version 1)
Quarter: 2016Q4

REPORT INFORMATION
  Report Type: Spontaneous
  Country: US (occurrence: US)
  Receive Date: 20161207
  Receipt Date: 20161207
  Transmission Date: 20170207
  Serious: No
  Sender: FDA-Public Use
  Company Number: None

PATIENT
  Age: 86 Year
  Sex: Male

DRUGS (1)
  1. REVLIMID [Suspect]
     Active Substance: LENALIDOMIDE
     Indication: PLASMA CELL MYELOMA
     Route: 048
     Dates: start: 20140920

REACTIONS (5)
  - Pain [None]
  - Myalgia [None]
  - Nausea [None]
  - Dizziness [None]
  - Constipation [None]

NARRATIVE: CASE EVENT DATE: 20141002
